FAERS Safety Report 7411075-X (Version None)
Quarter: 2011Q2

REPORT INFORMATION
  Report Type: 
  Country: None (occurrence: None)
  Receive Date: 20110413
  Receipt Date: 20110405
  Transmission Date: 20111010
  Serious: Yes (Other)
  Sender: FDA-Public Use
  Company Number: FR-BAXTER-2011BH010349

PATIENT
  Age: 63 Year
  Sex: Male

DRUGS (3)
  1. CYCLOPHOSPHAMIDE [Suspect]
     Indication: LYMPHOCYTIC LYMPHOMA
     Route: 042
     Dates: start: 20100901, end: 20110103
  2. CLADRIBINE [Suspect]
     Indication: LYMPHOCYTIC LYMPHOMA
     Route: 042
     Dates: start: 20100901, end: 20110103
  3. MABTHERA [Suspect]
     Indication: LYMPHOCYTIC LYMPHOMA
     Route: 065
     Dates: start: 20060101, end: 20110103

REACTIONS (1)
  - PERIPHERAL SENSORIMOTOR NEUROPATHY [None]
